FAERS Safety Report 4608298-1 (Version None)
Quarter: 2005Q2

REPORT INFORMATION
  Report Type: 
  Country: None (occurrence: None)
  Receive Date: 20050303
  Receipt Date: 20041216
  Transmission Date: 20051028
  Serious: No
  Sender: FDA-Public Use
  Company Number: 2004BI001892

PATIENT

DRUGS (1)
  1. AMEVIVE [Suspect]
     Indication: PSORIASIS
     Dosage: 15 MG;QW;IM
     Route: 030

REACTIONS (1)
  - MYALGIA [None]
